FAERS Safety Report 6876058-7 (Version None)
Quarter: 2010Q3

REPORT INFORMATION
  Report Type: 
  Country: None (occurrence: None)
  Receive Date: 20100727
  Receipt Date: 20100723
  Transmission Date: 20110219
  Serious: Yes (Hospitalization)
  Sender: FDA-Public Use
  Company Number: IT-MERCK-1007ITA00043

PATIENT
  Age: 55 Year
  Sex: Female

DRUGS (2)
  1. JANUVIA [Suspect]
     Indication: TYPE 2 DIABETES MELLITUS
     Route: 048
     Dates: start: 20090611
  2. METFORMIN [Concomitant]
     Route: 048
     Dates: start: 20041011, end: 20100714

REACTIONS (1)
  - ISCHAEMIC STROKE [None]
